FAERS Safety Report 24977220 (Version 2)
Quarter: 2025Q2

REPORT INFORMATION
  Report Type: Spontaneous
  Country: CA (occurrence: CA)
  Receive Date: 20250217
  Receipt Date: 20250402
  Transmission Date: 20250717
  Serious: Yes (Other)
  Sender: SANOFI AVENTIS
  Company Number: CA-SA-2025SA042715

PATIENT
  Age: 68 Year
  Sex: Male

DRUGS (10)
  1. ADMELOG [Suspect]
     Active Substance: INSULIN LISPRO
     Indication: Diabetes mellitus
     Dosage: 14-16IU, TID
     Route: 058
     Dates: start: 202408, end: 202408
  2. ADMELOG [Suspect]
     Active Substance: INSULIN LISPRO
     Route: 058
     Dates: start: 202408, end: 202408
  3. ADMELOG [Suspect]
     Active Substance: INSULIN LISPRO
     Dosage: 14-16IU, TID
     Route: 058
     Dates: start: 202408, end: 20240819
  4. CARVEDILOL [Concomitant]
     Active Substance: CARVEDILOL
  5. ENTRESTO [Concomitant]
     Active Substance: SACUBITRIL\VALSARTAN
  6. EPLERENONE [Concomitant]
     Active Substance: EPLERENONE
  7. JARDIANCE [Concomitant]
     Active Substance: EMPAGLIFLOZIN
  8. IVABRADINE [Concomitant]
     Active Substance: IVABRADINE
     Route: 048
  9. ROSUVASTATIN [Concomitant]
     Active Substance: ROSUVASTATIN
  10. SYNTHROID [Concomitant]
     Active Substance: LEVOTHYROXINE SODIUM

REACTIONS (3)
  - Increased insulin requirement [Recovered/Resolved]
  - Blood glucose increased [Recovered/Resolved]
  - Product substitution issue [Unknown]

NARRATIVE: CASE EVENT DATE: 20240806
